FAERS Safety Report 7321312-8 (Version None)
Quarter: 2011Q1

REPORT INFORMATION
  Report Type: 
  Country: None (occurrence: None)
  Receive Date: 20110228
  Receipt Date: 20100331
  Transmission Date: 20110831
  Serious: Yes (Other)
  Sender: FDA-Public Use
  Company Number: US-PFIZER INC-2010041964

PATIENT
  Sex: Female

DRUGS (2)
  1. GEODON [Suspect]
     Dosage: 60 MG, 2X/DAY
  2. GEODON [Suspect]
     Dosage: 60 MG, 1X/DAY

REACTIONS (1)
  - OCULOGYRIC CRISIS [None]
